FAERS Safety Report 7057822-0 (Version None)
Quarter: 2010Q4

REPORT INFORMATION
  Report Type: 
  Country: None (occurrence: None)
  Receive Date: 20101022
  Receipt Date: 20101014
  Transmission Date: 20110411
  Serious: Yes (Hospitalization, Other)
  Sender: FDA-Public Use
  Company Number: US-US-EMD SERONO, INC.-231025J09USA

PATIENT
  Sex: Female

DRUGS (12)
  1. REBIF [Suspect]
     Indication: MULTIPLE SCLEROSIS
     Route: 058
     Dates: start: 20081010, end: 20100601
  2. LEVOXYL [Concomitant]
     Indication: HYPOTHYROIDISM
     Dates: start: 20040101
  3. CALCIUM WITH VITAMIN D [Concomitant]
     Indication: ROUTINE HEALTH MAINTENANCE
  4. MULTI-VITAMINS [Concomitant]
     Indication: ROUTINE HEALTH MAINTENANCE
  5. MAGNESIUM [Concomitant]
     Indication: MYALGIA
  6. CYMBALTA [Concomitant]
     Indication: DEPRESSION
     Route: 065
     Dates: start: 20090601
  7. ZYRTEC [Concomitant]
     Indication: SEASONAL ALLERGY
  8. YAZ [Concomitant]
     Indication: CONTRACEPTION
  9. ACETAMINOPHEN [Concomitant]
     Indication: PREMEDICATION
  10. SKELAXIN [Concomitant]
     Indication: MYALGIA
  11. NAPRELAN [Concomitant]
     Indication: MYALGIA
  12. VITAMIN B-12 [Concomitant]
     Indication: MULTIPLE SCLEROSIS

REACTIONS (3)
  - MACULOPATHY [None]
  - MULTIPLE SCLEROSIS RELAPSE [None]
  - NEUROPATHY PERIPHERAL [None]
